FAERS Safety Report 5663605-6 (Version None)
Quarter: 2008Q1

REPORT INFORMATION
  Report Type: 
  Country: None (occurrence: None)
  Receive Date: 20080304
  Receipt Date: 20080220
  Transmission Date: 20080703
  Serious: Yes (Other)
  Sender: FDA-Public Use
  Company Number: CHNY2008DE00694

PATIENT
  Age: 72 Year
  Sex: Male
  Weight: 73 kg

DRUGS (5)
  1. LAMISIL [Suspect]
     Indication: TINEA PEDIS
     Dosage: ONCE/SINGLE, TOPICAL
     Route: 061
     Dates: start: 20070601, end: 20070601
  2. BATRAFEN (CICLOPIROX OLAMINE) [Concomitant]
  3. CHINOSOL (POTASSIUM HYDROXYQUINOLIN SULFATE) [Concomitant]
  4. IMAZOL PASTE (CLOTRIMAZOLE) [Concomitant]
  5. EPIPEVISONE (ECONAZOLE NITRATE, TRIAMCINOLONE ACETONIDE) [Concomitant]

REACTIONS (8)
  - CONDITION AGGRAVATED [None]
  - CRYING [None]
  - OPEN WOUND [None]
  - PAIN [None]
  - PHARMACEUTICAL PRODUCT COMPLAINT [None]
  - SKIN HAEMORRHAGE [None]
  - SKIN INFLAMMATION [None]
  - WOUND SECRETION [None]
